FAERS Safety Report 14014526 (Version 1)
Quarter: 2017Q3

REPORT INFORMATION
  Report Type: Spontaneous
  Country: US (occurrence: None)
  Receive Date: 20170926
  Receipt Date: 20170926
  Transmission Date: 20171128
  Serious: Yes (Disabling)
  Sender: FDA-Public Use
  Company Number: None

PATIENT
  Age: 28 Year
  Sex: Male

DRUGS (1)
  1. OLD SPICE HIGH ENDURANCE ORIGINAL [Suspect]
     Active Substance: ALUMINUM ZIRCONIUM TRICHLOROHYDREX GLY
     Route: 061
     Dates: end: 20170824

REACTIONS (10)
  - Erythema [None]
  - Chemical burn of skin [None]
  - Skin exfoliation [None]
  - Skin discolouration [None]
  - Skin fissures [None]
  - Axillary pain [None]
  - Dry skin [None]
  - Skin irritation [None]
  - Pain [None]
  - Impaired work ability [None]

NARRATIVE: CASE EVENT DATE: 20170823
